FAERS Safety Report 7922709 (Version 3)
Quarter: 2013Q1

REPORT INFORMATION
  Report Type: Spontaneous
  Country: US (occurrence: US)
  Receive Date: 20110429
  Receipt Date: 20130104
  Transmission Date: 20140127
  Serious: No
  Sender: FDA-Public Use
  Company Number: US-ASTRAZENECA-2010SE13536

PATIENT
  Age: 59 Year
  Sex: Male

DRUGS (16)
  1. NEXIUM [Suspect]
     Route: 048
     Dates: start: 20111005
  2. TOPROL XL [Concomitant]
  3. RHINOCORT AQUA [Concomitant]
  4. ATIVAN [Concomitant]
     Indication: ANXIETY
  5. DOLOPHINE [Concomitant]
  6. PRIVINIL [Concomitant]
  7. AMBIEN [Concomitant]
     Indication: SLEEP DISORDER
  8. LIPITOR [Concomitant]
  9. ANDROGEL [Concomitant]
  10. LOPRESSOR [Concomitant]
  11. AMLODIPIN [Concomitant]
  12. ALLOPURINOL [Concomitant]
  13. NAPROSYN [Concomitant]
  14. NITROSTAT [Concomitant]
     Indication: CHEST PAIN
  15. ASPIRIN [Concomitant]
  16. VITAMIN C [Concomitant]

REACTIONS (11)
  - Intentional drug misuse [Unknown]
  - Intentional drug misuse [Unknown]
  - Gastrooesophageal reflux disease [Unknown]
  - Anxiety disorder [Unknown]
  - Barrett^s oesophagus [Unknown]
  - Abdominal pain upper [Unknown]
  - Vomiting [Unknown]
  - Gastric disorder [Unknown]
  - Malaise [Unknown]
  - Sleep disorder [Unknown]
  - Off label use [Unknown]
